FAERS Safety Report 4324668-3 (Version None)
Quarter: 2004Q1

REPORT INFORMATION
  Report Type: 
  Country: None (occurrence: None)
  Receive Date: 20040325
  Receipt Date: 20040325
  Transmission Date: 20041129
  Serious: No
  Sender: FDA-Public Use
  Company Number: None

PATIENT
  Age: 50 Year
  Sex: Male
  Weight: 105.6881 kg

DRUGS (2)
  1. MIRTAZAPINE [Suspect]
     Indication: INSOMNIA
     Dosage: 15 MG HS ORAL
     Route: 048
     Dates: start: 20040219, end: 20040226
  2. TRAMADOL HCL [Suspect]
     Indication: ARTHROPATHY
     Dosage: 50 MG TID ORAL
     Route: 048
     Dates: start: 20031104, end: 20040324

REACTIONS (4)
  - ABDOMINAL DISCOMFORT [None]
  - DIZZINESS [None]
  - HEADACHE [None]
  - HYPERHIDROSIS [None]
